FAERS Safety Report 9413574 (Version 2)
Quarter: 2015Q2

REPORT INFORMATION
  Report Type: Spontaneous
  Country: US (occurrence: None)
  Receive Date: 20130628
  Receipt Date: 20150403
  Transmission Date: 20150821
  Serious: Yes (Life-Threatening, Hospitalization)
  Sender: FDA-Public Use
  Company Number: 13-F-US-00111

PATIENT
  Age: 46 Year
  Sex: Male
  Weight: 86.2 kg

DRUGS (1)
  1. PRALATREXATE [Suspect]
     Active Substance: PRALATREXATE
     Indication: NON-SMALL CELL LUNG CANCER
     Route: 042
     Dates: end: 20130404

REACTIONS (5)
  - Acute myocardial infarction [None]
  - Pneumonia [None]
  - Pleural effusion [None]
  - Pyrexia [None]
  - Myocardial ischaemia [None]

NARRATIVE: CASE EVENT DATE: 20130421
